FAERS Safety Report 16544197 (Version 1)
Quarter: 2019Q3

REPORT INFORMATION
  Report Type: Spontaneous
  Country: US (occurrence: US)
  Receive Date: 20190709
  Receipt Date: 20190709
  Transmission Date: 20191004
  Serious: No
  Sender: FDA-Public Use
  Company Number: US-PFIZER INC-2019291948

PATIENT
  Age: 54 Year
  Sex: Male

DRUGS (4)
  1. OXYCONTIN [Suspect]
     Active Substance: OXYCODONE HYDROCHLORIDE
     Indication: PAIN
     Dosage: 80 MG, TWICE DAILY
     Route: 048
  2. BUPRENORPHINE. [Suspect]
     Active Substance: BUPRENORPHINE
     Indication: PAIN
     Dosage: UNK
  3. OXYCODONE [Suspect]
     Active Substance: OXYCODONE
     Indication: PAIN
     Dosage: UNK
     Route: 048
  4. DILAUDID [Suspect]
     Active Substance: HYDROMORPHONE HYDROCHLORIDE
     Indication: PAIN
     Dosage: 8 MG, FIVE TIMES DAILY
     Route: 048

REACTIONS (1)
  - Drug ineffective [Unknown]
